FAERS Safety Report 9532276 (Version 1)
Quarter: 2013Q3

REPORT INFORMATION
  Report Type: Spontaneous
  Country: CA (occurrence: CA)
  Receive Date: 20130918
  Receipt Date: 20130918
  Transmission Date: 20140515
  Serious: Yes (Other)
  Sender: FDA-Public Use
  Company Number: CA-ASTRAZENECA-2013SE68628

PATIENT
  Sex: Female

DRUGS (9)
  1. FASLODEX [Suspect]
     Route: 030
  2. TAMOXIFEN [Suspect]
     Route: 048
  3. AROMASIN [Suspect]
     Route: 065
  4. CYCLOPHOSPHAMIDE [Suspect]
     Route: 065
  5. DOCETAXEL [Suspect]
     Route: 042
  6. DOXORUBICIN HYDROCHLORIDE INJECTION [Suspect]
     Route: 065
  7. FLUOROURACIL [Suspect]
     Route: 065
  8. FEMARA [Suspect]
     Route: 048
  9. VINCRISTINE SULFATE [Suspect]
     Route: 065

REACTIONS (3)
  - Drug intolerance [Unknown]
  - Breast cancer female [Unknown]
  - Neoplasm progression [Unknown]
